FAERS Safety Report 8431069-5 (Version None)
Quarter: 2012Q2

REPORT INFORMATION
  Report Type: 
  Country: None (occurrence: None)
  Receive Date: 20120612
  Receipt Date: 20120608
  Transmission Date: 20120825
  Serious: Yes (Other)
  Sender: FDA-Public Use
  Company Number: GB-PFIZER INC-2012139812

PATIENT
  Age: 82 Year
  Sex: Female

DRUGS (1)
  1. LYRICA [Suspect]
     Dosage: 25 MG, 5 TIMES DAILY

REACTIONS (2)
  - HAEMATOCHEZIA [None]
  - BLOOD URINE PRESENT [None]
